FAERS Safety Report 8386707-2 (Version None)
Quarter: 2012Q2

REPORT INFORMATION
  Report Type: 
  Country: None (occurrence: None)
  Receive Date: 20120525
  Receipt Date: 20120514
  Transmission Date: 20120825
  Serious: Yes (Death, Other)
  Sender: FDA-Public Use
  Company Number: US-SANOFI-AVENTIS-2012SA034889

PATIENT
  Age: 62 Year
  Sex: Female

DRUGS (3)
  1. FLOLAN [Suspect]
     Dates: start: 20111201, end: 20111201
  2. PRIMACOR [Suspect]
     Indication: CARDIAC OUTPUT
     Route: 042
     Dates: start: 20111201, end: 20111201
  3. SILDENAFIL CITRATE [Suspect]
     Indication: PULMONARY HYPERTENSION
     Route: 048
     Dates: start: 20110824, end: 20111214

REACTIONS (6)
  - CARDIOPULMONARY FAILURE [None]
  - SHOCK [None]
  - LEUKAEMOID REACTION [None]
  - CARDIOGENIC SHOCK [None]
  - SEPTIC SHOCK [None]
  - HYPOTENSION [None]
